FAERS Safety Report 19200064 (Version 1)
Quarter: 2021Q2

REPORT INFORMATION
  Report Type: Spontaneous
  Country: CA (occurrence: CA)
  Receive Date: 20210430
  Receipt Date: 20210430
  Transmission Date: 20210717
  Serious: Yes (Hospitalization, Other)
  Sender: FDA-Public Use
  Company Number: CA-GLAXOSMITHKLINE-CA2021AMR094081

PATIENT
  Age: 43 Year
  Sex: Female
  Weight: 54 kg

DRUGS (13)
  1. EPOPROSTENOL SODIUM. [Suspect]
     Active Substance: EPOPROSTENOL SODIUM
     Indication: PULMONARY ARTERIAL HYPERTENSION
     Dosage: UNK
     Route: 042
  2. AMILORIDE HYDROCHLORIDE. [Concomitant]
     Active Substance: AMILORIDE HYDROCHLORIDE
     Indication: CARDIAC FAILURE CONGESTIVE
     Dosage: UNK
     Route: 048
  3. ADCIRCA [Concomitant]
     Active Substance: TADALAFIL
     Indication: PULMONARY ARTERIAL HYPERTENSION
     Dosage: 40 MG, QD
     Route: 048
  4. TRACLEER [Suspect]
     Active Substance: BOSENTAN
     Indication: PULMONARY ARTERIAL HYPERTENSION
     Dosage: 250 MG, QD
     Route: 048
  5. SPIRONOLACTONE. [Concomitant]
     Active Substance: SPIRONOLACTONE
     Indication: CARDIAC FAILURE
     Dosage: UNK
     Route: 048
  6. FUROSEMIDE + POTASSIUM CHLORIDE [Concomitant]
     Indication: CARDIAC FAILURE
     Dosage: UNK
     Route: 048
  7. RIVAROXABAN [Concomitant]
     Active Substance: RIVAROXABAN
     Indication: PROPHYLAXIS
     Dosage: UNK
     Route: 048
  8. UPTRAVI [Suspect]
     Active Substance: SELEXIPAG
     Indication: PULMONARY ARTERIAL HYPERTENSION
     Dosage: 400 UG, QD
     Route: 048
  9. METOLAZONE. [Concomitant]
     Active Substance: METOLAZONE
     Indication: CARDIAC FAILURE CONGESTIVE
     Dosage: UNK
     Route: 048
  10. NIFEDIPINE. [Concomitant]
     Active Substance: NIFEDIPINE
     Indication: ANGINA PECTORIS
     Dosage: UNK
     Route: 048
  11. ESOMEPRAZOLE. [Concomitant]
     Active Substance: ESOMEPRAZOLE MAGNESIUM
     Indication: GASTROOESOPHAGEAL REFLUX DISEASE
     Dosage: UNK
     Route: 048
  12. UPTRAVI [Suspect]
     Active Substance: SELEXIPAG
     Dosage: 800 UG, QD
     Route: 048
  13. POTASSIUM CHLORIDE. [Concomitant]
     Active Substance: POTASSIUM CHLORIDE
     Indication: HYPOKALAEMIA
     Dosage: UNK
     Route: 048

REACTIONS (12)
  - Pulmonary arterial hypertension [Unknown]
  - Malaise [Recovered/Resolved]
  - Bacteraemia [Recovered/Resolved]
  - Pain in jaw [Recovered/Resolved]
  - Disease progression [Unknown]
  - Diarrhoea [Recovered/Resolved]
  - Dyspnoea [Recovered/Resolved]
  - Presyncope [Recovered/Resolved]
  - Vascular device infection [Recovered/Resolved]
  - Nausea [Recovered/Resolved]
  - Palpitations [Recovered/Resolved]
  - Headache [Recovered/Resolved]
